FAERS Safety Report 9690120 (Version 2)
Quarter: 2013Q4

REPORT INFORMATION
  Report Type: Spontaneous
  Country: DE (occurrence: DE)
  Receive Date: 20131115
  Receipt Date: 20131120
  Transmission Date: 20140711
  Serious: Yes (Other)
  Sender: FDA-Public Use
  Company Number: PHHY2013DE127415

PATIENT
  Age: 60 Year
  Sex: Male

DRUGS (17)
  1. METHYLPHENIDATE [Suspect]
     Indication: OFF LABEL USE
     Dosage: 4X10 MG
  2. TRANYLCYPROMINE [Interacting]
     Dosage: 10 MG, UNK
  3. MODAFINIL [Concomitant]
     Dosage: 300 MG, UNK
  4. SELEGILINE [Concomitant]
     Dosage: 5 MG, UNK
  5. OXYCODONE [Concomitant]
     Dosage: 20 MG, 2-3 X DAILY
  6. MORPHINE [Concomitant]
     Dosage: 30 MG, 2 X FOR NIGHT
  7. SPIRONOLACTONE [Concomitant]
     Dosage: 50 MG, UNK
  8. HYDROCHLOROTHIAZIDE [Concomitant]
     Dosage: 25 MG, UNK
  9. COFFEIN [Concomitant]
     Dosage: 200 MG, UNK
  10. BROMOCRIPTINE [Concomitant]
     Dosage: 2.5 MG, UNK
  11. BIOTINE//BIOTIN [Concomitant]
     Dosage: UNK UKN, UNK
  12. THIAMINE [Concomitant]
     Dosage: 6 X DAILY
  13. COBALAMIN [Concomitant]
     Dosage: 1X PER MONTH
     Route: 058
  14. MAGNESIUM [Concomitant]
     Dosage: 500 MG, UNK
  15. COLECALCIFEROL [Concomitant]
     Dosage: 1 MG, UNK
  16. RISPERIDONE [Concomitant]
     Dosage: 1 MG, UNK
  17. BROMAZEPAM [Concomitant]
     Dosage: 1.5 MG, UNK

REACTIONS (16)
  - Macular degeneration [Unknown]
  - Infarction [Unknown]
  - Parkinson^s disease [Unknown]
  - Gait disturbance [Unknown]
  - Intervertebral disc degeneration [Unknown]
  - Body height decreased [Unknown]
  - Herpes zoster [Unknown]
  - Subcutaneous abscess [Unknown]
  - Muscle spasticity [Unknown]
  - Neuralgia [Unknown]
  - Electroencephalogram abnormal [Unknown]
  - Narcolepsy [Unknown]
  - Influenza like illness [Unknown]
  - Drug interaction [Unknown]
  - Dizziness [Unknown]
  - Insomnia [Unknown]
